FAERS Safety Report 8559840-X (Version None)
Quarter: 2012Q3

REPORT INFORMATION
  Report Type: 
  Country: None (occurrence: None)
  Receive Date: 20120802
  Receipt Date: 20120727
  Transmission Date: 20120928
  Serious: Yes (Other)
  Sender: FDA-Public Use
  Company Number: US-PFIZER INC-2012182956

PATIENT
  Sex: Female
  Weight: 80.726 kg

DRUGS (3)
  1. XALATAN [Suspect]
     Indication: GLAUCOMA
     Dosage: 1 GTT, DAILY
  2. GLYBURIDE [Concomitant]
     Indication: DIABETES MELLITUS
     Dosage: 2.5 MG, DAILY
  3. TIMOLOL [Concomitant]
     Indication: GLAUCOMA
     Dosage: 1 GTT, DAILY

REACTIONS (2)
  - BLOOD GLUCOSE DECREASED [None]
  - MULTIPLE MYELOMA [None]
